FAERS Safety Report 7959142-6 (Version None)
Quarter: 2011Q4

REPORT INFORMATION
  Report Type: 
  Country: None (occurrence: None)
  Receive Date: 20111206
  Receipt Date: 20111123
  Transmission Date: 20120403
  Serious: Yes (Disabling)
  Sender: FDA-Public Use
  Company Number: US-ELI_LILLY_AND_COMPANY-US201111008619

PATIENT
  Age: 58 Year
  Sex: Female

DRUGS (5)
  1. LITHIUM CARBONATE [Concomitant]
  2. BENADRYL [Concomitant]
  3. ZYPREXA [Suspect]
     Indication: BIPOLAR DISORDER
     Dosage: 5 MG, QD
     Dates: start: 20070101
  4. LAMICTAL [Concomitant]
  5. SEROQUEL [Concomitant]

REACTIONS (1)
  - MENTAL DISORDER [None]
